FAERS Safety Report 8530652-6 (Version None)
Quarter: 2012Q3

REPORT INFORMATION
  Report Type: 
  Country: None (occurrence: None)
  Receive Date: 20120723
  Receipt Date: 20120710
  Transmission Date: 20120928
  Serious: Yes (Hospitalization, Other)
  Sender: FDA-Public Use
  Company Number: FR-NOVOPROD-354340

PATIENT
  Age: 44 Year
  Sex: Male

DRUGS (12)
  1. NOVOMIX 50 FLEXPEN [Suspect]
     Dosage: 14 U, QD
     Route: 065
  2. NOVORAPID [Suspect]
     Indication: TYPE 1 DIABETES MELLITUS
     Dosage: 2 IU, QD
  3. NOVOMIX 50 FLEXPEN [Suspect]
     Dosage: 18 U, QD
     Route: 065
  4. NOVOMIX 50 FLEXPEN [Suspect]
     Dosage: UNK
     Route: 065
  5. LANTUS [Concomitant]
     Indication: TYPE 1 DIABETES MELLITUS
     Dosage: 16 IU, QD
  6. REPAGLINIDE [Concomitant]
     Indication: TYPE 1 DIABETES MELLITUS
     Dosage: 2 MG, TID
  7. REPAGLINIDE [Concomitant]
     Dosage: 1 MG, TID
  8. NOVOMIX 30 [Suspect]
     Dosage: 8 IU, QD
     Route: 065
  9. NOVOMIX 30 [Suspect]
     Dosage: UNK
     Route: 065
  10. NOVOMIX 50 FLEXPEN [Suspect]
     Indication: TYPE 1 DIABETES MELLITUS
     Dosage: (8-12) IU
     Route: 065
  11. NOVOMIX 30 [Suspect]
     Dosage: 6 IU, QD
     Route: 065
  12. NOVOMIX 30 [Suspect]
     Indication: TYPE 1 DIABETES MELLITUS
     Dosage: 14 IU, QD
     Route: 065

REACTIONS (4)
  - INTENTIONAL DRUG MISUSE [None]
  - HYPOGLYCAEMIC COMA [None]
  - HYPOGLYCAEMIC UNCONSCIOUSNESS [None]
  - HYPOGLYCAEMIA [None]
